FAERS Safety Report 19418687 (Version 2)
Quarter: 2021Q3

REPORT INFORMATION
  Report Type: Spontaneous
  Country: US (occurrence: US)
  Receive Date: 20210615
  Receipt Date: 20210716
  Transmission Date: 20211014
  Serious: Yes (Other)
  Sender: FDA-Public Use
  Company Number: US-STRIDES ARCOLAB LIMITED-2021SP006401

PATIENT
  Age: 64 Year
  Sex: Male

DRUGS (3)
  1. RANITIDINE. [Suspect]
     Active Substance: RANITIDINE
     Indication: DYSPEPSIA
     Dosage: UNK, ZANTAC, VARIED DAILY AND WEEKLY
     Route: 048
     Dates: start: 198001, end: 201012
  2. RANITIDINE. [Suspect]
     Active Substance: RANITIDINE
     Indication: GASTROOESOPHAGEAL REFLUX DISEASE
  3. RANITIDINE. [Suspect]
     Active Substance: RANITIDINE
     Indication: HYPERCHLORHYDRIA
     Dosage: UNK, RANITIDINE, VARIED DAILY AND WEEKLY
     Route: 048
     Dates: start: 198001, end: 201012

REACTIONS (2)
  - Bladder cancer [Unknown]
  - Throat cancer [Recovered/Resolved]

NARRATIVE: CASE EVENT DATE: 20100209
